FAERS Safety Report 16261682 (Version 1)
Quarter: 2019Q2

REPORT INFORMATION
  Report Type: Spontaneous
  Country: SE (occurrence: SE)
  Receive Date: 20190501
  Receipt Date: 20190501
  Transmission Date: 20190711
  Serious: Yes (Death)
  Sender: FDA-Public Use
  Company Number: SE-NAPPMUNDI-GBR-2019-0066164

PATIENT
  Age: 33 Year
  Sex: Female

DRUGS (20)
  1. LYRICA [Suspect]
     Active Substance: PREGABALIN
     Indication: ANXIETY
     Dosage: 300 MG, DAILY
     Route: 048
  2. ALVEDON [Concomitant]
     Active Substance: ACETAMINOPHEN
     Dosage: 4 G, DAILY
  3. VENLAFAXINE [Concomitant]
     Active Substance: VENLAFAXINE HYDROCHLORIDE
     Dosage: 150 MG, DAILY
  4. NOZINAN                            /00038601/ [Concomitant]
     Active Substance: LEVOMEPROMAZINE
     Dosage: 5 MG, PRN (AS NECESSARY)
  5. DIMOR [Concomitant]
     Active Substance: LOPERAMIDE
     Dosage: 2 MG, PRN (AS NECESSARY)
  6. OXYCODONE HYDROCHLORIDE. [Suspect]
     Active Substance: OXYCODONE HYDROCHLORIDE
     Indication: FIBROMYALGIA
     Dosage: 1, AS NECESSARY
     Route: 048
  7. DEPO-PROVERA [Concomitant]
     Active Substance: MEDROXYPROGESTERONE ACETATE
  8. STILNOCT [Concomitant]
     Active Substance: ZOLPIDEM TARTRATE
     Dosage: 5 MG, PRN (AS NECESSARY)
  9. BUPRENORPHINE. [Suspect]
     Active Substance: BUPRENORPHINE
     Indication: FIBROMYALGIA
     Dosage: ENLIGT SARSKILD ORDINATION
     Route: 062
  10. DEXAMFETAMINE PHOSPHATE [Suspect]
     Active Substance: DEXTROAMPHETAMINE
     Indication: AFFECT LABILITY
     Dosage: 30 MG, DAILY
     Route: 048
     Dates: start: 20160620, end: 20180110
  11. BEHEPAN [Concomitant]
     Active Substance: HYDROXOCOBALAMIN
     Dosage: 1 MG, DAILY
  12. PRIMPERAN [Concomitant]
     Active Substance: METOCLOPRAMIDE HYDROCHLORIDE
     Dosage: 10 MG, PRN
  13. MICROLAX                           /00285401/ [Concomitant]
     Dosage: 1 AS NECESSARY
  14. KETIPINOR [Concomitant]
     Active Substance: QUETIAPINE FUMARATE
     Dosage: 100 MG DAILY TILL NATTEN
  15. PARAFLEX [Concomitant]
     Active Substance: CHLORZOXAZONE
     Dosage: ^250MG 1-2 VB^, AS NECESSARY
  16. MIRTAZAPINE. [Concomitant]
     Active Substance: MIRTAZAPINE
     Dosage: 30 MG DAILY TILL NATTEN
  17. CALCICHEW-D3 [Concomitant]
     Active Substance: CALCIUM\CHOLECALCIFEROL
     Dosage: 1X2 2
  18. OXASCAND [Concomitant]
     Active Substance: OXAZEPAM
     Dosage: 5 MG, PRN (AS NECESSARY)
  19. LERGIGAN                           /00033002/ [Concomitant]
     Active Substance: PROMETHAZINE HYDROCHLORIDE
     Dosage: 50 MG, AS NECESSARY
  20. THERALEN [Concomitant]
     Active Substance: TRIMEPRAZINE
     Dosage: ^0.5-2ML VB^, AS NECESSARY

REACTIONS (2)
  - Sudden death [Fatal]
  - Overdose [Fatal]

NARRATIVE: CASE EVENT DATE: 201812
